FAERS Safety Report 24326821 (Version 1)
Quarter: 2024Q3

REPORT INFORMATION
  Report Type: Spontaneous
  Country: DE (occurrence: DE)
  Receive Date: 20240917
  Receipt Date: 20240917
  Transmission Date: 20241017
  Serious: Yes (Death, Life-Threatening, Congenital Anomaly, Other)
  Sender: ACCORD
  Company Number: None

PATIENT
  Sex: Male

DRUGS (4)
  1. SERTRALINE [Suspect]
     Active Substance: SERTRALINE HYDROCHLORIDE
     Indication: Depression
     Dates: start: 20221210, end: 20230331
  2. VERMOX [Suspect]
     Active Substance: MEBENDAZOLE
     Indication: Enterobiasis
     Dosage: APPLIED TWICE FOR 3 DAYS WITH 2 WEEKS IN BETWEEN
  3. LEVOTHYROXINE SODIUM [Concomitant]
     Active Substance: LEVOTHYROXINE SODIUM
     Indication: Hypothyroidism
     Dosage: 50 MICROGRAM/D  25 MICROGRAM/D UNTIL GW 4 THEN INCREASED TO 50 MICROGRAM/D
     Dates: start: 20221210, end: 20230331
  4. HEPARIN [Concomitant]
     Active Substance: HEPARIN SODIUM
     Indication: Factor V Leiden mutation
     Dosage: NO DETAILS KNOWN
     Dates: start: 20230107, end: 20230331

REACTIONS (2)
  - Foetal megacystis [Fatal]
  - Foetal exposure during pregnancy [Unknown]
